FAERS Safety Report 5671548-7 (Version None)
Quarter: 2008Q1

REPORT INFORMATION
  Report Type: 
  Country: None (occurrence: None)
  Receive Date: 20080318
  Receipt Date: 20080306
  Transmission Date: 20080703
  Serious: Yes (Life-Threatening, Hospitalization)
  Sender: FDA-Public Use
  Company Number: JP-PFIZER INC-2008023660

PATIENT
  Sex: Female
  Weight: 43 kg

DRUGS (4)
  1. JZOLOFT [Suspect]
     Route: 048
  2. HALCION [Suspect]
     Indication: INSOMNIA
     Route: 048
  3. ROHYPNOL [Suspect]
     Indication: INSOMNIA
     Route: 048
  4. ALL OTHER THERAPEUTIC PRODUCTS [Suspect]
     Route: 048
     Dates: start: 20080121, end: 20080121

REACTIONS (5)
  - ACUTE RESPIRATORY DISTRESS SYNDROME [None]
  - ALTERED STATE OF CONSCIOUSNESS [None]
  - DRUG TOXICITY [None]
  - INTERSTITIAL LUNG DISEASE [None]
  - OVERDOSE [None]
